FAERS Safety Report 7817545-4 (Version None)
Quarter: 2011Q4

REPORT INFORMATION
  Report Type: 
  Country: None (occurrence: None)
  Receive Date: 20111017
  Receipt Date: 20111010
  Transmission Date: 20120403
  Serious: Yes (Other)
  Sender: FDA-Public Use
  Company Number: GB-UCBSA-040830

PATIENT
  Age: 60 Year
  Sex: Female

DRUGS (2)
  1. INSULIN [Concomitant]
     Indication: DIABETES MELLITUS
     Dosage: TOTAL DAILY DOSE:4
     Route: 058
  2. CIMZIA [Suspect]
     Indication: RHEUMATOID ARTHRITIS
     Route: 058
     Dates: start: 20110709, end: 20110101

REACTIONS (2)
  - WEIGHT INCREASED [None]
  - INCREASED INSULIN REQUIREMENT [None]
